FAERS Safety Report 19917771 (Version 1)
Quarter: 2021Q4

REPORT INFORMATION
  Report Type: Spontaneous
  Country: US (occurrence: US)
  Receive Date: 20211005
  Receipt Date: 20211005
  Transmission Date: 20220303
  Serious: Yes (Death)
  Sender: FDA-Public Use
  Company Number: None

PATIENT
  Age: 88 Year
  Sex: Female
  Weight: 74.7 kg

DRUGS (16)
  1. REGEN-COV [Suspect]
     Active Substance: CASIRIVIMAB\IMDEVIMAB
     Indication: COVID-19
     Dosage: ?          OTHER FREQUENCY:ONCE;
     Route: 042
     Dates: start: 20210930, end: 20210930
  2. Allopurinol 100mg daily [Concomitant]
  3. Amlodipine 5mg daily [Concomitant]
  4. ASPIRIN [Concomitant]
     Active Substance: ASPIRIN
  5. Calcitriol 0.25mcg daily [Concomitant]
  6. Ditropan 5mg daily [Concomitant]
  7. Hydralazine 50mg TID [Concomitant]
  8. Hydrocodone/APAP 10mg/325mg [Concomitant]
  9. Lasix 20mg daily PRN [Concomitant]
  10. Lipitor 40mg QHS [Concomitant]
  11. Omeprazole 40mg daily [Concomitant]
  12. Prozac 20mg daily [Concomitant]
  13. Spironolactone 25mg daily [Concomitant]
  14. Synthroid 0.125mg daily [Concomitant]
  15. Tenormin 100mg BID [Concomitant]
  16. Vitamin D 5000u daily [Concomitant]

REACTIONS (2)
  - Pulse absent [None]
  - Cardiac arrest [None]

NARRATIVE: CASE EVENT DATE: 20210930
